FAERS Safety Report 7674693-X (Version None)
Quarter: 2011Q3

REPORT INFORMATION
  Report Type: 
  Country: None (occurrence: None)
  Receive Date: 20110810
  Receipt Date: 20110722
  Transmission Date: 20111222
  Serious: Yes (Death, Hospitalization)
  Sender: FDA-Public Use
  Company Number: US-GLAXOSMITHKLINE-A0873821A

PATIENT
  Age: 43 Year
  Sex: Male

DRUGS (1)
  1. AVANDIA [Suspect]
     Indication: DIABETES MELLITUS
     Dosage: 2MG PER DAY
     Route: 048
     Dates: start: 19990501, end: 20091001

REACTIONS (7)
  - CEREBROVASCULAR ACCIDENT [None]
  - GRAND MAL CONVULSION [None]
  - DEATH [None]
  - ACUTE CORONARY SYNDROME [None]
  - SEPTIC SHOCK [None]
  - RESPIRATORY FAILURE [None]
  - CARDIAC FAILURE CONGESTIVE [None]
